FAERS Safety Report 5488758-4 (Version None)
Quarter: 2007Q4

REPORT INFORMATION
  Report Type: 
  Country: None (occurrence: None)
  Receive Date: 20071017
  Receipt Date: 20071015
  Transmission Date: 20080405
  Serious: Yes (Hospitalization)
  Sender: FDA-Public Use
  Company Number: US-BOEHRINGER INGELHEIM PHARMACEUTICALS, INC.-2007-BP-18376BP

PATIENT
  Sex: Female

DRUGS (11)
  1. SPIRIVA [Suspect]
     Indication: CHRONIC OBSTRUCTIVE PULMONARY DISEASE
     Route: 055
     Dates: start: 20050101
  2. SPIRIVA [Suspect]
     Indication: DYSPNOEA
  3. ADVAIR DISKUS 100/50 [Concomitant]
  4. CLONAZEPAM [Concomitant]
  5. CIMETIDINE [Concomitant]
  6. VERAPAMIL [Concomitant]
  7. AVANDIA [Concomitant]
  8. METFORMIN [Concomitant]
  9. LISINOPRIL [Concomitant]
  10. LIPITOR [Concomitant]
  11. CHANTIX [Concomitant]

REACTIONS (2)
  - CORONARY ARTERY DISEASE [None]
  - SKIN LACERATION [None]
